FAERS Safety Report 21281031 (Version 7)
Quarter: 2022Q4

REPORT INFORMATION
  Report Type: Spontaneous
  Country: AU (occurrence: AU)
  Receive Date: 20220901
  Receipt Date: 20221118
  Transmission Date: 20230113
  Serious: Yes (Hospitalization, Other)
  Sender: FDA-Public Use
  Company Number: AU-MYLANLABS-2022M1086202

PATIENT
  Age: 56 Year
  Sex: Female

DRUGS (33)
  1. CLOZARIL [Suspect]
     Active Substance: CLOZAPINE
     Indication: Schizophrenia
     Dosage: UNK
     Route: 048
     Dates: start: 20190712
  2. CLOZARIL [Suspect]
     Active Substance: CLOZAPINE
     Dosage: 200 MILLIGRAM, HS
     Route: 065
  3. CLOZARIL [Suspect]
     Active Substance: CLOZAPINE
     Dosage: 1.2 GRAM
     Route: 065
  4. CLOZARIL [Suspect]
     Active Substance: CLOZAPINE
     Dosage: 250 MILLIGRAM
     Route: 065
     Dates: start: 20220712, end: 20220809
  5. CLOZARIL [Suspect]
     Active Substance: CLOZAPINE
     Dosage: UNK
     Route: 048
     Dates: end: 20220810
  6. CLOZARIL [Suspect]
     Active Substance: CLOZAPINE
     Dosage: UNK
     Route: 048
     Dates: start: 20220915
  7. CLOZARIL [Suspect]
     Active Substance: CLOZAPINE
     Dosage: 200 MILLIGRAM
     Route: 048
     Dates: start: 20220928
  8. CLOZARIL [Suspect]
     Active Substance: CLOZAPINE
     Dosage: UNK
     Route: 048
     Dates: start: 20220928
  9. COVID-19 VACCINE NOS [Suspect]
     Active Substance: COVID-19 VACCINE NOS
     Indication: Product used for unknown indication
     Dosage: UNK (COVID BOOSTER INJECTION)
     Route: 065
     Dates: start: 20220727
  10. AMISULPRIDE [Concomitant]
     Active Substance: AMISULPRIDE
     Dosage: 200 MILLIGRAM, BID
     Route: 065
     Dates: start: 20220712
  11. AMISULPRIDE [Concomitant]
     Active Substance: AMISULPRIDE
     Dosage: 2.4 GRAM
     Route: 065
  12. AMISULPRIDE [Concomitant]
     Active Substance: AMISULPRIDE
     Dosage: 200 MILLIGRAM, BID
     Route: 065
     Dates: start: 20220809
  13. AMISULPRIDE [Concomitant]
     Active Substance: AMISULPRIDE
     Dosage: 200 MILLIGRAM, BID
     Route: 065
     Dates: start: 20220810
  14. AMISULPRIDE [Concomitant]
     Active Substance: AMISULPRIDE
     Dosage: 200 MILLIGRAM, BID
     Route: 065
     Dates: start: 20220811
  15. AMISULPRIDE [Concomitant]
     Active Substance: AMISULPRIDE
     Dosage: 200 MILLIGRAM, BID
     Route: 065
     Dates: start: 20220813
  16. AMISULPRIDE [Concomitant]
     Active Substance: AMISULPRIDE
     Dosage: 200 MILLIGRAM, BID
     Route: 065
     Dates: start: 20220815
  17. AMISULPRIDE [Concomitant]
     Active Substance: AMISULPRIDE
     Dosage: 200 MILLIGRAM, HS
     Route: 065
     Dates: start: 20220819
  18. AMISULPRIDE [Concomitant]
     Active Substance: AMISULPRIDE
     Dosage: 200 MILLIGRAM, HS
     Route: 065
     Dates: start: 20220820
  19. AMISULPRIDE [Concomitant]
     Active Substance: AMISULPRIDE
     Dosage: 200 MILLIGRAM, HS
     Route: 065
     Dates: start: 20220822
  20. AMISULPRIDE [Concomitant]
     Active Substance: AMISULPRIDE
     Dosage: 200 MILLIGRAM, HS
     Route: 065
     Dates: start: 20220823
  21. AMISULPRIDE [Concomitant]
     Active Substance: AMISULPRIDE
     Dosage: 200 MILLIGRAM, HS
     Route: 065
     Dates: start: 20220824
  22. AMISULPRIDE [Concomitant]
     Active Substance: AMISULPRIDE
     Dosage: 200 MILLIGRAM, HS
     Route: 065
     Dates: start: 20220825
  23. AMISULPRIDE [Concomitant]
     Active Substance: AMISULPRIDE
     Dosage: 200 MILLIGRAM, HS
     Route: 065
     Dates: start: 20220826
  24. OLANZAPINE [Concomitant]
     Active Substance: OLANZAPINE
     Dosage: 5 MILLIGRAM
     Route: 065
     Dates: start: 20220819
  25. OLANZAPINE [Concomitant]
     Active Substance: OLANZAPINE
     Dosage: 5 MILLIGRAM
     Route: 065
     Dates: start: 20220820
  26. OLANZAPINE [Concomitant]
     Active Substance: OLANZAPINE
     Dosage: 5 MILLIGRAM
     Route: 065
     Dates: start: 20220822
  27. OLANZAPINE [Concomitant]
     Active Substance: OLANZAPINE
     Dosage: 5 MILLIGRAM
     Route: 065
     Dates: start: 20220823
  28. OLANZAPINE [Concomitant]
     Active Substance: OLANZAPINE
     Dosage: 10 MILLIGRAM
     Route: 065
     Dates: start: 20220824
  29. OLANZAPINE [Concomitant]
     Active Substance: OLANZAPINE
     Dosage: 10 MILLIGRAM
     Route: 065
     Dates: start: 20220825
  30. OLANZAPINE [Concomitant]
     Active Substance: OLANZAPINE
     Dosage: 10 MILLIGRAM
     Route: 065
     Dates: start: 20220826
  31. PALIPERIDONE [Concomitant]
     Active Substance: PALIPERIDONE
     Dosage: UNK
     Route: 065
  32. ARIPIPRAZOLE [Concomitant]
     Active Substance: ARIPIPRAZOLE
     Dosage: UNK
     Route: 065
  33. POLYETHYLENE GLYCOLS [Concomitant]
     Active Substance: POLYETHYLENE GLYCOLS
     Dosage: UNK
     Route: 065

REACTIONS (25)
  - Hospitalisation [Unknown]
  - Rebound psychosis [Unknown]
  - Delirium [Unknown]
  - Leukopenia [Recovered/Resolved]
  - Neutropenia [Recovered/Resolved]
  - Myocarditis [Unknown]
  - Disease recurrence [Unknown]
  - Lactate dehydrogenase urine increased [Recovered/Resolved]
  - Troponin T increased [Not Recovered/Not Resolved]
  - Anion gap increased [Recovered/Resolved]
  - Red cell distribution width increased [Not Recovered/Not Resolved]
  - Blood urea decreased [Recovered/Resolved]
  - Blood phosphorus decreased [Recovered/Resolved]
  - General physical health deterioration [Unknown]
  - Troponin abnormal [Unknown]
  - Lymphopenia [Unknown]
  - Blood creatine phosphokinase increased [Not Recovered/Not Resolved]
  - White blood cell count decreased [Not Recovered/Not Resolved]
  - Aspartate aminotransferase increased [Recovered/Resolved]
  - Malaise [Unknown]
  - Gamma-glutamyltransferase increased [Unknown]
  - Withdrawal syndrome [Unknown]
  - Product administration error [Unknown]
  - Intentional dose omission [Unknown]
  - Neutrophil count decreased [Recovering/Resolving]

NARRATIVE: CASE EVENT DATE: 20210127
